FAERS Safety Report 5826003-8 (Version None)
Quarter: 2008Q3

REPORT INFORMATION
  Report Type: 
  Country: None (occurrence: None)
  Receive Date: 20080729
  Receipt Date: 20080721
  Transmission Date: 20090109
  Serious: Yes (Death, Hospitalization)
  Sender: FDA-Public Use
  Company Number: US-ROCHE-532585

PATIENT
  Sex: Female
  Weight: 74.8 kg

DRUGS (25)
  1. CAPECITABINE [Suspect]
     Dosage: PERMANENTLY DISCONTINUED.
     Route: 048
     Dates: start: 20071029, end: 20071112
  2. BEVACIZUMAB [Suspect]
     Dosage: PERMANENTLY DISCONTINUED.
     Route: 042
     Dates: start: 20071029, end: 20071029
  3. OXALIPLATIN [Suspect]
     Dosage: PERMANENTLY DISCONTINUED.
     Route: 042
     Dates: start: 20071029, end: 20071029
  4. BYETTA [Concomitant]
     Dates: start: 20071023, end: 20071112
  5. PROCHLORPERAZINE MALEATE [Concomitant]
     Dates: start: 20071022, end: 20071112
  6. PHILLIPS' MOM [Concomitant]
     Dates: start: 20071022, end: 20071112
  7. PHILLIPS' MOM [Concomitant]
  8. LORTAB [Concomitant]
  9. FISH OIL [Concomitant]
     Dates: start: 20070924, end: 20071112
  10. TYLENOL (CAPLET) [Concomitant]
     Dosage: DRUG REPORTED: TYENOL ARTHRITIS PAIN
  11. AVANDIA [Concomitant]
     Dates: start: 20070912, end: 20071112
  12. ACIPHEX [Concomitant]
  13. GLYBURIDE [Concomitant]
     Dates: start: 20070827, end: 20071112
  14. FUROSEMIDE [Concomitant]
  15. FERROUS SULFATE TAB [Concomitant]
     Dates: start: 20070924, end: 20071112
  16. CAPTOPRIL [Concomitant]
     Dates: start: 20070923, end: 20071112
  17. LOFIBRA [Concomitant]
     Dates: start: 20070127, end: 20071112
  18. XALATAN [Concomitant]
     Dosage: TDD: 1GTT
     Dates: start: 20070524, end: 20071112
  19. TIMOLOL MALEATE [Concomitant]
     Dosage: TDD: 1 GTT
     Dates: start: 20070524, end: 20071117
  20. BENADRYL [Concomitant]
     Dates: start: 20070810, end: 20071112
  21. YUCCA [Concomitant]
     Dates: start: 20031014, end: 20071112
  22. GLUCOSAMINE SULFATE/CHONDROITIN [Concomitant]
     Dates: start: 20030819, end: 20071112
  23. VITAMINS NOS [Concomitant]
     Dosage: DRUG REPORTED: VITAMIN TABLETS
  24. LASIX [Concomitant]
     Dates: start: 20070821, end: 20071112
  25. TYLENOL [Concomitant]
     Dates: start: 20070912, end: 20071112

REACTIONS (4)
  - ABDOMINAL PAIN [None]
  - GASTROINTESTINAL HAEMORRHAGE [None]
  - HAEMATEMESIS [None]
  - MUCOSAL INFLAMMATION [None]
